FAERS Safety Report 23871922 (Version 1)
Quarter: 2024Q2

REPORT INFORMATION
  Report Type: Spontaneous
  Country: US (occurrence: US)
  Receive Date: 20240520
  Receipt Date: 20240520
  Transmission Date: 20240715
  Serious: No
  Sender: FDA-Public Use
  Company Number: US-SA-SAC20240513000403

PATIENT
  Sex: Male
  Weight: 88 kg

DRUGS (1)
  1. DUPIXENT [Suspect]
     Active Substance: DUPILUMAB
     Indication: Illness
     Dosage: 300 MG, QW
     Route: 058

REACTIONS (2)
  - Feeling abnormal [Unknown]
  - Arthralgia [Unknown]
